FAERS Safety Report 6960790-0 (Version None)
Quarter: 2010Q3

REPORT INFORMATION
  Report Type: 
  Country: None (occurrence: None)
  Receive Date: 20100901
  Receipt Date: 20100825
  Transmission Date: 20110219
  Serious: Yes (Hospitalization)
  Sender: FDA-Public Use
  Company Number: CO-ROCHE-723251

PATIENT
  Sex: Female

DRUGS (3)
  1. AVASTIN [Suspect]
     Indication: OVARIAN CANCER
     Dosage: FORM: INFUSION
     Route: 042
     Dates: start: 20091009, end: 20100604
  2. TRAMADOL HCL [Concomitant]
     Indication: PAIN
     Dosage: DOSE REPORTED AS: DROPS, FREQUENCY: PRN (AS NECESSARY)
     Route: 048
  3. OMEPRAZOLE [Concomitant]
     Route: 048

REACTIONS (1)
  - PANCREATITIS [None]
